FAERS Safety Report 10211357 (Version 1)
Quarter: 2014Q2

REPORT INFORMATION
  Report Type: Spontaneous
  Country: GB (occurrence: None)
  Receive Date: 20140528
  Receipt Date: 20140528
  Transmission Date: 20141212
  Serious: Yes (Disabling, Other)
  Sender: FDA-Public Use
  Company Number: AUR-APL-2014-06060

PATIENT
  Age: 52 Year
  Sex: Female
  Weight: 101.6 kg

DRUGS (3)
  1. QUETIAPINE [Suspect]
     Indication: BIPOLAR DISORDER
     Route: 048
     Dates: start: 20101217
  2. CARBIMAZOLE (CARBIMAZOLE) [Concomitant]
  3. LITHIUM CARBONATE (LITHIUM CARBONATE) [Concomitant]

REACTIONS (12)
  - Choking [None]
  - Panic reaction [None]
  - Paranoia [None]
  - Arthralgia [None]
  - Joint stiffness [None]
  - Lethargy [None]
  - Tachycardia [None]
  - Insomnia [None]
  - Withdrawal syndrome [None]
  - Depression [None]
  - Pain [None]
  - Impaired work ability [None]
